FAERS Safety Report 6803678-8 (Version None)
Quarter: 2010Q2

REPORT INFORMATION
  Report Type: 
  Country: None (occurrence: None)
  Receive Date: 20100628
  Receipt Date: 20100617
  Transmission Date: 20101027
  Serious: Yes (Other)
  Sender: FDA-Public Use
  Company Number: US-SANOFI-AVENTIS-2010SA035627

PATIENT
  Age: 69 Year
  Sex: Female

DRUGS (6)
  1. APIDRA [Suspect]
     Dosage: SLIDING SCALE
     Route: 058
     Dates: start: 20091101
  2. LANTUS [Suspect]
     Dosage: DOSE:60 UNIT(S)
     Route: 058
     Dates: start: 20000101
  3. PLAVIX [Suspect]
     Route: 048
     Dates: start: 20100401, end: 20100501
  4. NOVOLIN [Concomitant]
     Route: 065
  5. RAMIPRIL [Concomitant]
     Route: 065
     Dates: end: 20100501
  6. ANTIHYPERTENSIVES [Concomitant]
     Route: 065

REACTIONS (9)
  - ASTHENIA [None]
  - BLOOD GLUCOSE DECREASED [None]
  - CARDIAC FAILURE CONGESTIVE [None]
  - FALL [None]
  - HAEMORRHAGE [None]
  - HEADACHE [None]
  - PAIN [None]
  - PAIN IN EXTREMITY [None]
  - PERIPHERAL ARTERIAL OCCLUSIVE DISEASE [None]
